FAERS Safety Report 6339101-X (Version None)
Quarter: 2009Q3

REPORT INFORMATION
  Report Type: 
  Country: None (occurrence: None)
  Receive Date: 20090903
  Receipt Date: 20090901
  Transmission Date: 20100115
  Serious: Yes (Other)
  Sender: FDA-Public Use
  Company Number: US-RB-020059-09

PATIENT
  Age: 8 Month

DRUGS (2)
  1. SUBOXONE [Suspect]
     Dosage: DOSING INFORMATION UNKNOWN.
     Route: 064
     Dates: start: 20080101, end: 20090101
  2. HEROIN [Suspect]
     Indication: DRUG USE FOR UNKNOWN INDICATION
     Route: 064

REACTIONS (3)
  - ABNORMAL BEHAVIOUR [None]
  - DEVELOPMENTAL DELAY [None]
  - DRUG EXPOSURE DURING PREGNANCY [None]
